FAERS Safety Report 6944712-4 (Version None)
Quarter: 2010Q3

REPORT INFORMATION
  Report Type: 
  Country: None (occurrence: None)
  Receive Date: 20100827
  Receipt Date: 20100818
  Transmission Date: 20110219
  Serious: Yes (Life-Threatening, Other)
  Sender: FDA-Public Use
  Company Number: JP-SANOFI-AVENTIS-2010SA041633

PATIENT
  Age: 65 Year
  Sex: Female

DRUGS (14)
  1. OXALIPLATIN [Suspect]
     Route: 041
     Dates: start: 20091202, end: 20091202
  2. OXALIPLATIN [Suspect]
     Route: 041
     Dates: start: 20100324, end: 20100324
  3. AVASTIN [Suspect]
     Route: 041
     Dates: start: 20091202, end: 20091202
  4. AVASTIN [Suspect]
     Route: 041
     Dates: start: 20100324, end: 20100324
  5. FLUOROURACIL [Suspect]
     Route: 041
     Dates: start: 20091202, end: 20091202
  6. FLUOROURACIL [Suspect]
     Route: 041
     Dates: start: 20100325, end: 20100325
  7. CALCIUM LEVOFOLINATE [Suspect]
     Route: 041
     Dates: start: 20091202, end: 20091202
  8. CALCIUM LEVOFOLINATE [Suspect]
     Route: 041
     Dates: start: 20100324, end: 20100324
  9. GRANISETRON HCL [Concomitant]
     Route: 065
     Dates: start: 20091202, end: 20100324
  10. CALCICOL [Concomitant]
     Route: 065
     Dates: start: 20091202, end: 20100324
  11. MAGNESIUM SULFATE [Concomitant]
     Route: 065
     Dates: start: 20091202, end: 20100324
  12. DEXAMETHASONE SODIUM PHOSPHATE [Concomitant]
     Route: 065
     Dates: start: 20091202, end: 20100325
  13. LOXONIN [Concomitant]
     Dates: start: 20091201, end: 20091202
  14. POLAPREZINC [Concomitant]
     Dates: start: 20091210, end: 20091224

REACTIONS (8)
  - EPISTAXIS [None]
  - GASTROINTESTINAL NECROSIS [None]
  - HEPATIC FUNCTION ABNORMAL [None]
  - IMPAIRED HEALING [None]
  - NEUTROPHIL COUNT DECREASED [None]
  - PERITONITIS [None]
  - SMALL INTESTINAL PERFORATION [None]
  - STOMATITIS [None]
